FAERS Safety Report 15714728 (Version 1)
Quarter: 2018Q4

REPORT INFORMATION
  Report Type: Spontaneous
  Country: US (occurrence: US)
  Receive Date: 20181212
  Receipt Date: 20181212
  Transmission Date: 20190205
  Serious: Yes (Hospitalization)
  Sender: FDA-Public Use
  Company Number: None

PATIENT
  Sex: Female

DRUGS (3)
  1. ACTEMRA [Suspect]
     Active Substance: TOCILIZUMAB
     Indication: RHEUMATOID ARTHRITIS
     Dosage: ?          OTHER FREQUENCY:EVERY WEEK;?
     Route: 058
  2. METHOTREXATE 2.5MG [Concomitant]
     Active Substance: METHOTREXATE
  3. LYRICA [Concomitant]
     Active Substance: PREGABALIN

REACTIONS (2)
  - Therapy cessation [None]
  - Hospitalisation [None]
